FAERS Safety Report 16341156 (Version 3)
Quarter: 2024Q1

REPORT INFORMATION
  Report Type: Spontaneous
  Country: US (occurrence: US)
  Receive Date: 20190522
  Receipt Date: 20240212
  Transmission Date: 20240409
  Serious: Yes (Other)
  Sender: FDA-Public Use
  Company Number: US-GILEAD-2019-0407991

PATIENT
  Sex: Female
  Weight: 77.098 kg

DRUGS (27)
  1. TRUVADA [Suspect]
     Active Substance: EMTRICITABINE\TENOFOVIR DISOPROXIL FUMARATE
     Indication: HIV infection
     Dosage: UNK
     Route: 048
     Dates: start: 2011, end: 2011
  2. TRUVADA [Suspect]
     Active Substance: EMTRICITABINE\TENOFOVIR DISOPROXIL FUMARATE
     Dosage: UNK
     Route: 048
     Dates: start: 20121017, end: 20161026
  3. TRUVADA [Suspect]
     Active Substance: EMTRICITABINE\TENOFOVIR DISOPROXIL FUMARATE
     Dosage: UNK
     Route: 048
     Dates: start: 20121017, end: 20160921
  4. TRUVADA [Suspect]
     Active Substance: EMTRICITABINE\TENOFOVIR DISOPROXIL FUMARATE
     Dosage: UNK
     Route: 048
     Dates: end: 20161026
  5. COMPLERA [Suspect]
     Active Substance: EMTRICITABINE\RILPIVIRINE HYDROCHLORIDE\TENOFOVIR DISOPROXIL FUMARATE
     Indication: HIV infection
     Dosage: UNK
     Route: 048
     Dates: start: 20130204, end: 20130304
  6. COMPLERA [Suspect]
     Active Substance: EMTRICITABINE\RILPIVIRINE HYDROCHLORIDE\TENOFOVIR DISOPROXIL FUMARATE
     Dosage: UNK
     Route: 048
     Dates: start: 20130206, end: 20130304
  7. ODEFSEY [Concomitant]
     Active Substance: EMTRICITABINE\RILPIVIRINE HYDROCHLORIDE\TENOFOVIR ALAFENAMIDE FUMARATE
  8. EDURANT [Concomitant]
     Active Substance: RILPIVIRINE HYDROCHLORIDE
  9. CLOPIDOGREL [Concomitant]
     Active Substance: CLOPIDOGREL BISULFATE
  10. AMOXICILLIN [Concomitant]
     Active Substance: AMOXICILLIN
  11. CELEBREX [Concomitant]
     Active Substance: CELECOXIB
  12. FAMOTIDINE [Concomitant]
     Active Substance: FAMOTIDINE
  13. FUROSEMIDE [Concomitant]
     Active Substance: FUROSEMIDE
  14. HUMULIN 70/30 [Concomitant]
     Active Substance: INSULIN HUMAN
  15. HYDROCHLOROTHIAZIDE [Concomitant]
     Active Substance: HYDROCHLOROTHIAZIDE
  16. ROSUVASTATIN [Concomitant]
     Active Substance: ROSUVASTATIN
  17. JANUMET [Concomitant]
     Active Substance: METFORMIN HYDROCHLORIDE\SITAGLIPTIN PHOSPHATE
  18. LANTUS [Concomitant]
     Active Substance: INSULIN GLARGINE
  19. LORATADINE [Concomitant]
     Active Substance: LORATADINE
  20. LISINOPRIL [Concomitant]
     Active Substance: LISINOPRIL
  21. PRAVASTATIN [Concomitant]
     Active Substance: PRAVASTATIN
  22. METOPROLOL [Concomitant]
     Active Substance: METOPROLOL
  23. PROPYLTHIOURACIL [Concomitant]
     Active Substance: PROPYLTHIOURACIL
  24. NASONEX [Concomitant]
     Active Substance: MOMETASONE FUROATE
  25. MELOXICAM [Concomitant]
     Active Substance: MELOXICAM
  26. ASPIRIN [Concomitant]
     Active Substance: ASPIRIN
  27. TIZANIDINE [Concomitant]
     Active Substance: TIZANIDINE

REACTIONS (20)
  - Osteoporosis [Not Recovered/Not Resolved]
  - Renal impairment [Not Recovered/Not Resolved]
  - Emotional distress [Not Recovered/Not Resolved]
  - Economic problem [Not Recovered/Not Resolved]
  - Spinal pain [Not Recovered/Not Resolved]
  - Anhedonia [Not Recovered/Not Resolved]
  - Anxiety [Not Recovered/Not Resolved]
  - Arthralgia [Not Recovered/Not Resolved]
  - Arthralgia [Not Recovered/Not Resolved]
  - Back pain [Recovering/Resolving]
  - Pain in extremity [Not Recovered/Not Resolved]
  - Pain [Not Recovered/Not Resolved]
  - Nightmare [Unknown]
  - Spinal pain [Unknown]
  - Bone density decreased [Not Recovered/Not Resolved]
  - Gait disturbance [Not Recovered/Not Resolved]
  - Skeletal injury [Unknown]
  - Depression [Not Recovered/Not Resolved]
  - Anxiety [Not Recovered/Not Resolved]
  - Proteinuria [Not Recovered/Not Resolved]

NARRATIVE: CASE EVENT DATE: 20120101
